FAERS Safety Report 7980794-9 (Version None)
Quarter: 2011Q4

REPORT INFORMATION
  Report Type: 
  Country: None (occurrence: None)
  Receive Date: 20111214
  Receipt Date: 20111207
  Transmission Date: 20120403
  Serious: Yes (Other)
  Sender: FDA-Public Use
  Company Number: AT-ASTRAZENECA-2011SE72528

PATIENT
  Age: 49 Year
  Sex: Male
  Weight: 92 kg

DRUGS (9)
  1. CRESTOR [Suspect]
     Indication: HYPERLIPIDAEMIA
     Route: 048
     Dates: start: 20111002, end: 20111105
  2. ALLOQUIRIND [Concomitant]
  3. CRESTOR [Suspect]
     Indication: STENT PLACEMENT
     Route: 048
     Dates: start: 20111002, end: 20111105
  4. HYPREN [Concomitant]
     Route: 048
  5. EZETIMIBE [Concomitant]
  6. ASPIRIN [Concomitant]
     Dosage: 100 1X1
     Route: 048
  7. CONCORD [Concomitant]
     Route: 048
  8. EFFIENT [Concomitant]
     Route: 048
  9. PANTOPRAZOLE SODIUM [Concomitant]
     Route: 048

REACTIONS (1)
  - DYSGEUSIA [None]
